FAERS Safety Report 9723180 (Version 2)
Quarter: 2013Q4

REPORT INFORMATION
  Report Type: Spontaneous
  Country: GB (occurrence: None)
  Receive Date: 20131126
  Receipt Date: 20131211
  Transmission Date: 20140711
  Serious: Yes (Other)
  Sender: FDA-Public Use
  Company Number: SYM-2013-12720

PATIENT
  Age: 64 Year
  Sex: Male

DRUGS (7)
  1. DILTIAZEM HYDROCHLORIDE [Suspect]
     Indication: ANGINA PECTORIS
     Dosage: 200 MG, DAILY
     Route: 048
  2. DILTIAZEM HYDROCHLORIDE [Suspect]
     Indication: HYPERTENSION
     Dosage: 200 MG, DAILY
     Route: 048
  3. OMEPRAZOLE (OMEPRAZOLE) (OMEPRAZOLE) [Concomitant]
  4. FLUOXETINE (FLUOXETINE) (FLUOXETINE) [Concomitant]
  5. ASPIRIN (ACETYLSALICYLIC ACID) (ACETYLSALICYLIC ACID) [Concomitant]
  6. CLOPIDOGREL (CLOPIDOGREL) (CLOPIDOGREL) [Concomitant]
  7. ATORVASTATIN (ATORVASTATIN) (ATORVASTATIN) [Concomitant]

REACTIONS (4)
  - Palmar-plantar erythrodysaesthesia syndrome [None]
  - Skin exfoliation [None]
  - Mouth ulceration [None]
  - Tongue ulceration [None]
